FAERS Safety Report 18341328 (Version 1)
Quarter: 2020Q4

REPORT INFORMATION
  Report Type: Spontaneous
  Country: DE (occurrence: DE)
  Receive Date: 20201003
  Receipt Date: 20201003
  Transmission Date: 20210113
  Serious: Yes (Other)
  Sender: FDA-Public Use
  Company Number: NVSC2020DE263599

PATIENT
  Sex: Female
  Weight: 90 kg

DRUGS (15)
  1. METHOTREXATE. [Suspect]
     Active Substance: METHOTREXATE
     Dosage: 7.5 MG, QW (7.5 MILLIGRAM, QWK)
     Route: 058
     Dates: start: 20160215
  2. ADALIMUMAB [Suspect]
     Active Substance: ADALIMUMAB
     Dosage: 40 MG, BIW (40 MILLIGRAM, Q2WK)
     Route: 058
     Dates: start: 201307
  3. METHOTREXATE. [Suspect]
     Active Substance: METHOTREXATE
     Dosage: 20 MG, QW (20 MILLIGRAM, QWK)
     Route: 065
  4. METHOTREXATE. [Suspect]
     Active Substance: METHOTREXATE
     Dosage: UNK
     Route: 065
     Dates: start: 201506
  5. TOCILIZUMAB. [Suspect]
     Active Substance: TOCILIZUMAB
     Indication: PRODUCT USED FOR UNKNOWN INDICATION
     Dosage: UNK (INJECTION)
     Route: 042
     Dates: start: 201404
  6. METHOTREXATE. [Suspect]
     Active Substance: METHOTREXATE
     Indication: PRODUCT USED FOR UNKNOWN INDICATION
     Dosage: 7.5 MG, QW (7.5 MILLIGRAM, QWK)
     Route: 065
     Dates: start: 201410
  7. PREDNISOLONE. [Suspect]
     Active Substance: PREDNISOLONE
     Dosage: 50 MG (50 MILLIGRAM)
     Route: 065
  8. METHOTREXATE. [Suspect]
     Active Substance: METHOTREXATE
     Dosage: UNK
     Route: 065
     Dates: start: 201505
  9. PREDNISOLONE. [Suspect]
     Active Substance: PREDNISOLONE
     Dosage: 10 MG (10 MILLIGRAM)
     Route: 065
     Dates: start: 201612
  10. PREDNISOLONE. [Suspect]
     Active Substance: PREDNISOLONE
     Dosage: 20 MG (20 MILLIGRAM)
     Route: 065
     Dates: start: 201307
  11. ADALIMUMAB [Suspect]
     Active Substance: ADALIMUMAB
     Indication: SPONDYLITIS
     Dosage: 40 MG, BIW (40 MILLIGRAM, Q2WK)
     Route: 058
     Dates: start: 201301
  12. PREDNISOLONE. [Suspect]
     Active Substance: PREDNISOLONE
     Indication: PRODUCT USED FOR UNKNOWN INDICATION
     Dosage: 17.5 MG (17.5 MILLIGRAM)
     Route: 065
     Dates: start: 201506
  13. RITUXIMAB. [Suspect]
     Active Substance: RITUXIMAB
     Indication: PRODUCT USED FOR UNKNOWN INDICATION
     Dosage: 2 G (2 GRAM)
     Route: 065
     Dates: start: 201312
  14. CERTOLIZUMAB [Suspect]
     Active Substance: CERTOLIZUMAB
     Indication: PRODUCT USED FOR UNKNOWN INDICATION
     Dosage: 400 MILLIGRAM
     Route: 058
     Dates: start: 20160215, end: 201708
  15. ABATACEPT [Suspect]
     Active Substance: ABATACEPT
     Indication: PRODUCT USED FOR UNKNOWN INDICATION
     Dosage: UNK
     Route: 042
     Dates: start: 201410

REACTIONS (2)
  - Hypertensive crisis [Unknown]
  - Drug ineffective [Unknown]
